FAERS Safety Report 5468921-9 (Version None)
Quarter: 2007Q3

REPORT INFORMATION
  Report Type: 
  Country: None (occurrence: None)
  Receive Date: 20070926
  Receipt Date: 20070920
  Transmission Date: 20080115
  Serious: Yes (Hospitalization, Disabling, Other)
  Sender: FDA-Public Use
  Company Number: GB-MERCK-0709GBR00116

PATIENT

DRUGS (1)
  1. ZOCOR [Suspect]
     Indication: HYPERCHOLESTEROLAEMIA
     Route: 048

REACTIONS (1)
  - TIBIA FRACTURE [None]
